FAERS Safety Report 11366049 (Version 1)
Quarter: 2015Q3

REPORT INFORMATION
  Report Type: Report from Study
  Country: US (occurrence: US)
  Receive Date: 20150811
  Receipt Date: 20150811
  Transmission Date: 20151125
  Serious: No
  Sender: FDA-Public Use
  Company Number: US-CELGENEUS-USA-2015074235

PATIENT

DRUGS (3)
  1. DEX [Suspect]
     Active Substance: DEXAMETHASONE
     Route: 065
  2. REVLIMID [Suspect]
     Active Substance: LENALIDOMIDE
     Indication: PRODUCT USED FOR UNKNOWN INDICATION
     Route: 048
  3. DEX [Suspect]
     Active Substance: DEXAMETHASONE
     Indication: PRODUCT USED FOR UNKNOWN INDICATION
     Route: 065

REACTIONS (8)
  - Hypotonia [Unknown]
  - Blood immunoglobulin A increased [Recovering/Resolving]
  - Vision blurred [Recovered/Resolved]
  - Malaise [Recovering/Resolving]
  - Bronchitis [Unknown]
  - Dysphonia [Unknown]
  - Sinusitis [Unknown]
  - Tremor [Unknown]
